FAERS Safety Report 15409319 (Version 1)
Quarter: 2018Q3

REPORT INFORMATION
  Report Type: Spontaneous
  Country: US (occurrence: US)
  Receive Date: 20180920
  Receipt Date: 20180920
  Transmission Date: 20181010
  Serious: Yes (Hospitalization, Other)
  Sender: FDA-Public Use
  Company Number: US-GLAXOSMITHKLINE-US2018169213

PATIENT
  Age: 43 Year
  Sex: Female

DRUGS (1)
  1. BENLYSTA [Suspect]
     Active Substance: BELIMUMAB
     Indication: SYSTEMIC LUPUS ERYTHEMATOSUS
     Dosage: UNK UNK, CYC
     Route: 042

REACTIONS (8)
  - Laboratory test abnormal [Unknown]
  - Urinary retention [Unknown]
  - Pain [Unknown]
  - White blood cell count decreased [Unknown]
  - Hepatic enzyme increased [Unknown]
  - Constipation [Unknown]
  - Small fibre neuropathy [Unknown]
  - Ill-defined disorder [Unknown]

NARRATIVE: CASE EVENT DATE: 201803
